FAERS Safety Report 15715113 (Version 1)
Quarter: 2018Q4

REPORT INFORMATION
  Report Type: Spontaneous
  Country: JP (occurrence: JP)
  Receive Date: 20181212
  Receipt Date: 20181212
  Transmission Date: 20190205
  Serious: Yes (Other)
  Sender: FDA-Public Use
  Company Number: PHJP2018JP020523

PATIENT
  Age: 64 Year
  Sex: Male

DRUGS (1)
  1. IMATINIB. [Suspect]
     Active Substance: IMATINIB MESYLATE
     Indication: GASTROINTESTINAL STROMAL TUMOUR
     Dosage: 400 MG, QD
     Route: 048

REACTIONS (6)
  - Gastric neoplasm [Unknown]
  - Gastrointestinal wall thinning [Unknown]
  - Tumour invasion [Unknown]
  - Dysphagia [Unknown]
  - Tumour necrosis [Unknown]
  - Pyrexia [Unknown]
